FAERS Safety Report 13720193 (Version 1)
Quarter: 2017Q3

REPORT INFORMATION
  Report Type: Other
  Country: DE (occurrence: DE)
  Receive Date: 20170706
  Receipt Date: 20170706
  Transmission Date: 20171127
  Serious: No
  Sender: FDA-Public Use
  Company Number: DE-LUPIN PHARMACEUTICALS INC.-E2B_00006723

PATIENT
  Sex: Male
  Weight: 93 kg

DRUGS (5)
  1. ATORVASTATIN [Suspect]
     Active Substance: ATORVASTATIN
     Indication: HYPERCHOLESTEROLAEMIA
     Dosage: 20 MG,UNK,UNKNOWN
     Route: 048
     Dates: start: 20000302, end: 20000512
  2. PRAVASTATIN. [Suspect]
     Active Substance: PRAVASTATIN
     Indication: HYPERCHOLESTEROLAEMIA
     Dosage: 10 MG,UNK,UNKNOWN
     Route: 048
     Dates: start: 20160704, end: 20160802
  3. SIMVASTATIN. [Suspect]
     Active Substance: SIMVASTATIN
     Indication: HYPERCHOLESTEROLAEMIA
     Dosage: 20 MG,UNK,UNKNOWN
     Route: 048
     Dates: start: 20160902, end: 20161102
  4. FLUVASTATIN [Suspect]
     Active Substance: FLUVASTATIN SODIUM
     Indication: HYPERCHOLESTEROLAEMIA
     Dosage: 20 MG,UNK,UNKNOWN
     Route: 048
     Dates: start: 20160802, end: 20160901
  5. EZETIMIB [Suspect]
     Active Substance: EZETIMIBE
     Indication: HYPERCHOLESTEROLAEMIA
     Dosage: 10 MG,UNK,UNKNOWN
     Route: 048
     Dates: start: 20160229, end: 20160304

REACTIONS (6)
  - Abdominal discomfort [Recovered/Resolved]
  - Back pain [Recovered/Resolved]
  - Insomnia [Recovered/Resolved]
  - Dizziness [Recovered/Resolved]
  - Myalgia [Recovered/Resolved]
  - Skin reaction [Recovered/Resolved]
